FAERS Safety Report 5051314-6 (Version None)
Quarter: 2006Q3

REPORT INFORMATION
  Report Type: 
  Country: None (occurrence: None)
  Receive Date: 20060714
  Receipt Date: 20060314
  Transmission Date: 20061208
  Serious: Yes (Other)
  Sender: FDA-Public Use
  Company Number: 2006UW05055

PATIENT
  Age: 31 Year
  Sex: Female

DRUGS (4)
  1. SEROQUEL [Suspect]
     Indication: INSOMNIA
     Dosage: 100-900 MG
     Route: 048
     Dates: start: 20060131
  2. SEROQUEL [Suspect]
     Indication: AFFECTIVE DISORDER
     Dosage: 100-900 MG
     Route: 048
     Dates: start: 20060131
  3. SEROQUEL [Suspect]
     Route: 048
     Dates: start: 20060506
  4. SEROQUEL [Suspect]
     Route: 048
     Dates: start: 20060506

REACTIONS (2)
  - DRUG EXPOSURE DURING PREGNANCY [None]
  - GESTATIONAL DIABETES [None]
